FAERS Safety Report 23826867 (Version 2)
Quarter: 2024Q3

REPORT INFORMATION
  Report Type: Spontaneous
  Country: US (occurrence: US)
  Receive Date: 20240507
  Receipt Date: 20240730
  Transmission Date: 20241016
  Serious: Yes (Other)
  Sender: PFIZER
  Company Number: US-PFIZER INC-202400101755

PATIENT
  Age: 6 Year
  Sex: Female

DRUGS (1)
  1. OXBRYTA [Suspect]
     Active Substance: VOXELOTOR
     Dosage: 600 MG, 1X/DAY (PREPARE TWO TABLETS)
     Route: 048
     Dates: start: 20230505

REACTIONS (3)
  - Sickle cell anaemia with crisis [Recovering/Resolving]
  - Anaemia [Unknown]
  - Pain [Recovering/Resolving]
